FAERS Safety Report 23107846 (Version 4)
Quarter: 2024Q1

REPORT INFORMATION
  Report Type: Spontaneous
  Country: FR (occurrence: FR)
  Receive Date: 20231026
  Receipt Date: 20240117
  Transmission Date: 20240410
  Serious: Yes (Other)
  Sender: FDA-Public Use
  Company Number: FR-GILEAD-2023-0648483

PATIENT
  Age: 50 Year
  Sex: Male

DRUGS (2)
  1. SOVALDI [Suspect]
     Active Substance: SOFOSBUVIR
     Indication: Hepatitis C
     Dosage: UNK
     Route: 065
  2. DAKLINZA [Suspect]
     Active Substance: DACLATASVIR
     Indication: Product used for unknown indication
     Dosage: UNK
     Route: 065

REACTIONS (2)
  - Hepatitis C [Unknown]
  - Drug ineffective [Unknown]
